FAERS Safety Report 18661550 (Version 1)
Quarter: 2020Q4

REPORT INFORMATION
  Report Type: Spontaneous
  Country: CN (occurrence: CN)
  Receive Date: 20201224
  Receipt Date: 20201224
  Transmission Date: 20210114
  Serious: Yes (Disabling, Other)
  Sender: FDA-Public Use
  Company Number: CN-BAXTER-2020BAX026129

PATIENT
  Age: 3 Year
  Sex: Male

DRUGS (10)
  1. UROMITEXAN [Suspect]
     Active Substance: MESNA
     Route: 041
     Dates: start: 20201201, end: 20201202
  2. ENDOXAN [Suspect]
     Active Substance: CYCLOPHOSPHAMIDE
     Indication: NEOPLASM MALIGNANT
     Dosage: NS?20ML?+?CYCLOPHOSPHAMIDE?0.15G
     Route: 041
     Dates: start: 20201126, end: 20201128
  3. AOLUONA (TOPOTECAN HYDROCHLORIDE) [Suspect]
     Active Substance: TOPOTECAN HYDROCHLORIDE
     Dosage: NS?100ML?+?TOPOTECAN 0.46MG
     Route: 041
     Dates: start: 20201201, end: 20201202
  4. ENDOXAN [Suspect]
     Active Substance: CYCLOPHOSPHAMIDE
     Dosage: NS?20ML?+?CYCLOPHOSPHAMIDE?0.15G
     Route: 041
     Dates: start: 20201201, end: 20201202
  5. UROMITEXAN [Suspect]
     Active Substance: MESNA
     Indication: NEOPLASM MALIGNANT
     Route: 041
     Dates: start: 20201126, end: 20201128
  6. 0.9% SODIUM CHLORIDE INJECTION [Suspect]
     Active Substance: SODIUM CHLORIDE
     Dosage: NS?20ML?+?CYCLOPHOSPHAMIDE?0.15G
     Route: 041
     Dates: start: 20201126, end: 20201128
  7. AOLUONA (TOPOTECAN HYDROCHLORIDE) [Suspect]
     Active Substance: TOPOTECAN HYDROCHLORIDE
     Indication: NEOPLASM MALIGNANT
     Dosage: NS?100ML?+?TOPOTECAN 0.46MG
     Route: 041
     Dates: start: 20201126, end: 20201128
  8. 0.9% SODIUM CHLORIDE INJECTION [Suspect]
     Active Substance: SODIUM CHLORIDE
     Indication: MEDICATION DILUTION
     Dosage: NS?100ML?+?TOPOTECAN 0.46MG
     Route: 041
     Dates: start: 20201126, end: 20201128
  9. 0.9% SODIUM CHLORIDE INJECTION [Suspect]
     Active Substance: SODIUM CHLORIDE
     Dosage: NS?100ML?+?TOPOTECAN? 0.46MG
     Route: 041
     Dates: start: 20201201, end: 20201202
  10. 0.9% SODIUM CHLORIDE INJECTION [Suspect]
     Active Substance: SODIUM CHLORIDE
     Dosage: NS?20ML?+?CYCLOPHOSPHAMIDE?0.15G
     Route: 041
     Dates: start: 20201201, end: 20201202

REACTIONS (1)
  - Myelosuppression [Recovering/Resolving]

NARRATIVE: CASE EVENT DATE: 20201201
